FAERS Safety Report 23015023 (Version 1)
Quarter: 2023Q4

REPORT INFORMATION
  Report Type: Spontaneous
  Country: US (occurrence: US)
  Receive Date: 20231002
  Receipt Date: 20231002
  Transmission Date: 20240110
  Serious: Yes (Hospitalization)
  Sender: FDA-Public Use
  Company Number: US-ABBVIE-5429165

PATIENT
  Sex: Male

DRUGS (8)
  1. DEPAKOTE [Suspect]
     Active Substance: DIVALPROEX SODIUM
     Indication: Insomnia
     Dosage: AT BED TIME
     Route: 065
  2. DEPAKOTE [Suspect]
     Active Substance: DIVALPROEX SODIUM
     Indication: Insomnia
     Route: 065
  3. ABILIFY [Suspect]
     Active Substance: ARIPIPRAZOLE
     Indication: Bipolar disorder
     Route: 048
     Dates: start: 2023
  4. ABILIFY [Suspect]
     Active Substance: ARIPIPRAZOLE
     Indication: Bipolar disorder
     Dosage: LAST ADMIN DATE MAR 2022
     Route: 065
     Dates: start: 20220302
  5. ABILIFY [Suspect]
     Active Substance: ARIPIPRAZOLE
     Indication: Bipolar disorder
     Route: 065
     Dates: start: 20220304
  6. ABILIFY [Suspect]
     Active Substance: ARIPIPRAZOLE
     Indication: Bipolar disorder
     Dosage: REDUCED DOSE
     Route: 065
  7. RISPERDAL [Concomitant]
     Active Substance: RISPERIDONE
     Indication: Product used for unknown indication
     Dates: end: 2022
  8. GABAPENTIN [Suspect]
     Active Substance: GABAPENTIN
     Indication: Anxiety
     Route: 065
     Dates: end: 202211

REACTIONS (10)
  - Abnormal behaviour [Unknown]
  - Tremor [Recovering/Resolving]
  - Libido increased [Not Recovered/Not Resolved]
  - Immune system disorder [Unknown]
  - Depression [Recovering/Resolving]
  - Crying [Recovering/Resolving]
  - Anxiety [Unknown]
  - Agitation [Recovering/Resolving]
  - Insomnia [Not Recovered/Not Resolved]
  - Underdose [Unknown]

NARRATIVE: CASE EVENT DATE: 20220101
